FAERS Safety Report 23592705 (Version 1)
Quarter: 2024Q1

REPORT INFORMATION
  Report Type: Spontaneous
  Country: US (occurrence: None)
  Receive Date: 20240303
  Receipt Date: 20240303
  Transmission Date: 20240410
  Serious: Yes (Disabling)
  Sender: FDA-Public Use
  Company Number: None

PATIENT
  Age: 75 Year
  Sex: Female
  Weight: 72 kg

DRUGS (1)
  1. TROPICAMIDE [Suspect]
     Active Substance: TROPICAMIDE
     Dates: start: 20240228, end: 20240228

REACTIONS (13)
  - Extra dose administered [None]
  - Malaise [None]
  - Nausea [None]
  - Constipation [None]
  - Headache [None]
  - Tinnitus [None]
  - Hallucination [None]
  - Nightmare [None]
  - Pain in extremity [None]
  - Thirst [None]
  - Somnolence [None]
  - Palpitations [None]
  - Documented hypersensitivity to administered product [None]

NARRATIVE: CASE EVENT DATE: 20240228
